FAERS Safety Report 23276656 (Version 3)
Quarter: 2024Q2

REPORT INFORMATION
  Report Type: Report from Study
  Country: IT (occurrence: IT)
  Receive Date: 20231208
  Receipt Date: 20240411
  Transmission Date: 20240716
  Serious: Yes (Death, Hospitalization, Other)
  Sender: FDA-Public Use
  Company Number: IT-UCBSA-2023057682

PATIENT
  Age: 74 Year
  Sex: Male

DRUGS (1)
  1. NEUPRO [Suspect]
     Active Substance: ROTIGOTINE
     Indication: Parkinson^s disease
     Dosage: 8 MILLIGRAM, ONCE DAILY (QD)
     Route: 062

REACTIONS (11)
  - Parkinson^s disease [Fatal]
  - Pneumonia [Unknown]
  - Bronchial obstruction [Unknown]
  - Muscle rigidity [Unknown]
  - Asthenia [Unknown]
  - Speech disorder [Unknown]
  - Bedridden [Unknown]
  - Feeding tube user [Unknown]
  - Loss of personal independence in daily activities [Unknown]
  - Productive cough [Unknown]
  - Sedation [Unknown]

NARRATIVE: CASE EVENT DATE: 20230101
